FAERS Safety Report 4554541-7 (Version None)
Quarter: 2005Q1

REPORT INFORMATION
  Report Type: 
  Country: None (occurrence: None)
  Receive Date: 20050118
  Receipt Date: 20050117
  Transmission Date: 20050727
  Serious: Yes (Death, Life-Threatening, Hospitalization)
  Sender: FDA-Public Use
  Company Number: PHRM2005FR00542

PATIENT
  Age: 87 Year
  Sex: Female
  Weight: 57 kg

DRUGS (7)
  1. LORAZEPAM [Concomitant]
     Dosage: 0.5 MG/DAY
     Route: 048
     Dates: end: 20041219
  2. NOCTRAN [Concomitant]
     Dosage: 10 MG/DAY
     Route: 048
  3. CAPTOPRIL [Concomitant]
     Indication: ESSENTIAL HYPERTENSION
     Dosage: 62.5 MG/DAY
     Route: 048
  4. EXELON [Suspect]
     Indication: DEMENTIA
     Dosage: 1.5 MG IN THE EVENING
     Route: 048
     Dates: start: 20041220
  5. NITROGLYCERIN [Concomitant]
     Indication: ANGINA PECTORIS
     Dosage: 10 MG/DAY
     Route: 062
  6. LANSOPRAZOLE [Concomitant]
     Indication: OESOPHAGITIS
     Dosage: 15 MG/DAY
     Route: 048
  7. FENOFIBRATE [Concomitant]
     Dosage: 200 MG/DAY
     Route: 048
     Dates: end: 20041219

REACTIONS (9)
  - ATRIAL FIBRILLATION [None]
  - BLOOD PRESSURE INCREASED [None]
  - BODY TEMPERATURE DECREASED [None]
  - HEART RATE INCREASED [None]
  - OXYGEN SATURATION DECREASED [None]
  - RALES [None]
  - SOMNOLENCE [None]
  - URINARY INCONTINENCE [None]
  - VOMITING [None]
